FAERS Safety Report 10785489 (Version 1)
Quarter: 2015Q1

REPORT INFORMATION
  Report Type: Spontaneous
  Country: DE (occurrence: None)
  Receive Date: 20150209
  Receipt Date: 20150209
  Transmission Date: 20150721
  Serious: No
  Sender: FDA-Public Use
  Company Number: DE2015GSK010941

PATIENT
  Age: 37 Year
  Sex: Female
  Weight: 83.7 kg

DRUGS (5)
  1. SEROQUEL [Concomitant]
     Active Substance: QUETIAPINE FUMARATE
  2. FOLIC ACID (FOLIC ACID) [Concomitant]
     Active Substance: FOLIC ACID
  3. SEROXAT [Suspect]
     Active Substance: PAROXETINE HYDROCHLORIDE
     Indication: DEPRESSION
     Route: 048
     Dates: start: 20140331, end: 20150101
  4. L-THYROXIN (LEVOTHYROXINE SODIUM) [Concomitant]
  5. INSULIN [Suspect]
     Active Substance: INSULIN NOS
     Indication: PRODUCT USED FOR UNKNOWN INDICATION
     Dates: start: 2014

REACTIONS (7)
  - Caesarean section [None]
  - Gestational diabetes [None]
  - Foetal heart rate deceleration abnormality [None]
  - Obstructed labour [None]
  - Meconium in amniotic fluid [None]
  - Exposure during pregnancy [None]
  - Premature rupture of membranes [None]
